FAERS Safety Report 6907405-5 (Version None)
Quarter: 2010Q3

REPORT INFORMATION
  Report Type: 
  Country: None (occurrence: None)
  Receive Date: 20100805
  Receipt Date: 20100802
  Transmission Date: 20110219
  Serious: Yes (Hospitalization, Other)
  Sender: FDA-Public Use
  Company Number: US-ASTRAZENECA-2007UW08952

PATIENT
  Age: 51 Year
  Sex: Male
  Weight: 122.5 kg

DRUGS (33)
  1. SEROQUEL [Suspect]
     Indication: TACHYPHRENIA
     Dosage: 25 - 600 MG
     Route: 048
     Dates: start: 19990101
  2. SEROQUEL [Suspect]
     Indication: PSYCHOTIC DISORDER
     Dosage: 25 - 600 MG
     Route: 048
     Dates: start: 19990101
  3. SEROQUEL [Suspect]
     Indication: AFFECTIVE DISORDER
     Dosage: 25 - 600 MG
     Route: 048
     Dates: start: 19990101
  4. SEROQUEL [Suspect]
     Indication: INSOMNIA
     Dosage: 25 - 600 MG
     Route: 048
     Dates: start: 19990101
  5. SEROQUEL [Suspect]
     Indication: BIPOLAR DISORDER
     Dosage: 25 - 600 MG
     Route: 048
     Dates: start: 19990101
  6. SEROQUEL [Suspect]
     Dosage: 25-1800 MG
     Route: 048
     Dates: start: 20001227
  7. SEROQUEL [Suspect]
     Dosage: 25-1800 MG
     Route: 048
     Dates: start: 20001227
  8. SEROQUEL [Suspect]
     Dosage: 25-1800 MG
     Route: 048
     Dates: start: 20001227
  9. SEROQUEL [Suspect]
     Dosage: 25-1800 MG
     Route: 048
     Dates: start: 20001227
  10. SEROQUEL [Suspect]
     Dosage: 25-1800 MG
     Route: 048
     Dates: start: 20001227
  11. SEROQUEL [Suspect]
     Dosage: 25-800 MG
     Route: 048
     Dates: start: 20010103, end: 20070221
  12. SEROQUEL [Suspect]
     Dosage: 25-800 MG
     Route: 048
     Dates: start: 20010103, end: 20070221
  13. SEROQUEL [Suspect]
     Dosage: 25-800 MG
     Route: 048
     Dates: start: 20010103, end: 20070221
  14. SEROQUEL [Suspect]
     Dosage: 25-800 MG
     Route: 048
     Dates: start: 20010103, end: 20070221
  15. SEROQUEL [Suspect]
     Dosage: 25-800 MG
     Route: 048
     Dates: start: 20010103, end: 20070221
  16. SEROQUEL [Suspect]
     Dosage: 300 MG, 7-8 TABLETS, ONLY ONCE
     Route: 048
     Dates: start: 20060703, end: 20060703
  17. SEROQUEL [Suspect]
     Dosage: 300 MG, 7-8 TABLETS, ONLY ONCE
     Route: 048
     Dates: start: 20060703, end: 20060703
  18. SEROQUEL [Suspect]
     Dosage: 300 MG, 7-8 TABLETS, ONLY ONCE
     Route: 048
     Dates: start: 20060703, end: 20060703
  19. SEROQUEL [Suspect]
     Dosage: 300 MG, 7-8 TABLETS, ONLY ONCE
     Route: 048
     Dates: start: 20060703, end: 20060703
  20. SEROQUEL [Suspect]
     Dosage: 300 MG, 7-8 TABLETS, ONLY ONCE
     Route: 048
     Dates: start: 20060703, end: 20060703
  21. DEPAKOTE ER [Concomitant]
     Route: 048
     Dates: start: 20050518
  22. PROZAC [Concomitant]
     Route: 048
  23. BUSPAR [Concomitant]
     Route: 048
  24. ATIVAN [Concomitant]
     Indication: ANXIETY
     Dosage: 1 MG, EVERY 6 HRS AS NEEDED
     Route: 048
  25. THORAZINE [Concomitant]
     Indication: AGITATION
     Route: 048
  26. HYDROCHLOROTHIAZIDE [Concomitant]
     Indication: HYPERTENSION
     Route: 048
  27. ZYPREXA [Concomitant]
     Route: 048
  28. SYNTHROID [Concomitant]
     Route: 048
     Dates: start: 19940311
  29. VISTARIL [Concomitant]
     Indication: ANXIETY
     Route: 048
     Dates: start: 20050518
  30. METFORMIN HCL [Concomitant]
     Route: 048
     Dates: start: 20031201
  31. GLIPIZIDE [Concomitant]
     Route: 048
     Dates: start: 20050725
  32. LANTUS [Concomitant]
     Dosage: 20 UNITS, AT NIGHT
     Route: 058
     Dates: start: 20060704
  33. RISPERDAL [Concomitant]
     Indication: BIPOLAR DISORDER
     Dosage: 03-50 MG
     Dates: start: 19941103, end: 19941201

REACTIONS (6)
  - DIABETIC COMA [None]
  - HYPOGLYCAEMIA [None]
  - HYPOGLYCAEMIC COMA [None]
  - NEUROPATHY PERIPHERAL [None]
  - TYPE 1 DIABETES MELLITUS [None]
  - TYPE 2 DIABETES MELLITUS [None]
